FAERS Safety Report 24195980 (Version 1)
Quarter: 2024Q3

REPORT INFORMATION
  Report Type: Spontaneous
  Country: US (occurrence: None)
  Receive Date: 20240809
  Receipt Date: 20240809
  Transmission Date: 20241017
  Serious: No
  Sender: Public
  Company Number: None

PATIENT
  Age: 36 Year
  Sex: Female
  Weight: 90 kg

DRUGS (1)
  1. NEOSPORIN [Suspect]
     Active Substance: BACITRACIN ZINC\NEOMYCIN SULFATE\POLYMYXIN B SULFATE
     Indication: Scratch
     Dates: start: 20231116, end: 20231116

REACTIONS (3)
  - Burns second degree [None]
  - Swelling [None]
  - Eye contusion [None]

NARRATIVE: CASE EVENT DATE: 20231116
